FAERS Safety Report 13670135 (Version 2)
Quarter: 2017Q4

REPORT INFORMATION
  Report Type: Spontaneous
  Country: CA (occurrence: CA)
  Receive Date: 20170620
  Receipt Date: 20171128
  Transmission Date: 20180320
  Serious: Yes (Hospitalization, Disabling)
  Sender: FDA-Public Use
  Company Number: CA-SA-2017SA106085

PATIENT
  Age: 75 Year
  Sex: Female

DRUGS (33)
  1. SULFASALAZINE. [Suspect]
     Active Substance: SULFASALAZINE
     Route: 065
  2. ASPIRIN. [Concomitant]
     Active Substance: ASPIRIN
     Route: 065
  3. OLMESARTAN MEDOXOMIL. [Concomitant]
     Active Substance: OLMESARTAN MEDOXOMIL
     Route: 065
  4. ZOPICLONE [Concomitant]
     Active Substance: ZOPICLONE
     Route: 065
  5. ADVAIR HFA [Concomitant]
     Active Substance: FLUTICASONE PROPIONATE\SALMETEROL XINAFOATE
     Route: 065
  6. AMLODIPINE [Concomitant]
     Active Substance: AMLODIPINE BESYLATE
     Route: 065
  7. FOLIC ACID. [Concomitant]
     Active Substance: FOLIC ACID
     Route: 048
  8. RABEPRAZOLE [Concomitant]
     Active Substance: RABEPRAZOLE
     Route: 065
  9. TIOTROPIUM BROMIDE [Concomitant]
     Active Substance: TIOTROPIUM BROMIDE
     Route: 065
  10. PLAQUENIL [Suspect]
     Active Substance: HYDROXYCHLOROQUINE SULFATE
     Route: 048
  11. FOLIC ACID/ASCORBIC ACID/FERROUS GLUCONATE/COPPER SULFATE/MAGNESIUM SULFATE [Concomitant]
  12. RABEPRAZOLE SODIUM. [Concomitant]
     Active Substance: RABEPRAZOLE SODIUM
     Route: 048
  13. SPIRIVA [Concomitant]
     Active Substance: TIOTROPIUM BROMIDE MONOHYDRATE
     Route: 065
  14. ABATACEPT [Suspect]
     Active Substance: ABATACEPT
     Route: 065
     Dates: start: 201511, end: 201602
  15. CALCIUM [Concomitant]
     Active Substance: CALCIUM
     Route: 065
  16. ERGOCALCIFEROL. [Concomitant]
     Active Substance: ERGOCALCIFEROL
     Route: 065
  17. HYDROCHLOROTHIAZIDE. [Concomitant]
     Active Substance: HYDROCHLOROTHIAZIDE
     Route: 065
  18. HYDROXYCHLOROQUINE SULFATE. [Concomitant]
     Active Substance: HYDROXYCHLOROQUINE SULFATE
     Route: 048
  19. OXYBUTYNIN. [Concomitant]
     Active Substance: OXYBUTYNIN CHLORIDE
     Route: 065
  20. TYLENOL [Concomitant]
     Active Substance: ACETAMINOPHEN
     Route: 065
  21. ZINC GLUCONATE [Concomitant]
     Active Substance: ZINC GLUCONATE
     Route: 065
  22. ADALIMUMAB [Suspect]
     Active Substance: ADALIMUMAB
     Route: 058
     Dates: start: 2011, end: 201306
  23. ENBREL [Suspect]
     Active Substance: ETANERCEPT
     Route: 065
  24. ASCORBIC ACID. [Concomitant]
     Active Substance: ASCORBIC ACID
     Route: 048
  25. SENNA ALEXANDRINA/DOCUSATE SODIUM [Concomitant]
  26. PREDNISONE. [Concomitant]
     Active Substance: PREDNISONE
     Route: 065
  27. LEFLUNOMIDE. [Suspect]
     Active Substance: LEFLUNOMIDE
     Route: 048
     Dates: start: 20080707
  28. CITALOPRAM [Concomitant]
     Active Substance: CITALOPRAM HYDROBROMIDE
     Route: 065
  29. ACTONEL [Concomitant]
     Active Substance: RISEDRONATE SODIUM
     Route: 065
  30. FERROUS GLUCONATE [Concomitant]
     Active Substance: FERROUS GLUCONATE
     Route: 048
  31. DOCOSAHEXAENOIC ACID/EICOSAPENTAENOIC ACID/FISH OIL NATURAL/OMEGA 3 MARINE TRIGLYCERIDES [Concomitant]
  32. SENNA ALEXANDRINA [Concomitant]
     Active Substance: SENNA LEAF
  33. VITAMIN B12 [Concomitant]
     Active Substance: CYANOCOBALAMIN
     Route: 065

REACTIONS (21)
  - Vomiting [Unknown]
  - Drug ineffective [Unknown]
  - Urinary tract infection [Unknown]
  - Urine abnormality [Unknown]
  - Pyrexia [Unknown]
  - Osteoarthritis [Unknown]
  - Gait inability [Not Recovered/Not Resolved]
  - Drug hypersensitivity [Unknown]
  - Infection [Unknown]
  - Pain in extremity [Unknown]
  - Asthenia [Not Recovered/Not Resolved]
  - Chronic obstructive pulmonary disease [Unknown]
  - Rheumatoid arthritis [Unknown]
  - Fatigue [Not Recovered/Not Resolved]
  - Urine odour abnormal [Unknown]
  - Chills [Unknown]
  - Neuropathy peripheral [Unknown]
  - Hepatic enzyme abnormal [Unknown]
  - Malaise [Unknown]
  - Wheelchair user [Unknown]
  - Bone erosion [Unknown]
